FAERS Safety Report 26179968 (Version 1)
Quarter: 2025Q4

REPORT INFORMATION
  Report Type: Spontaneous
  Country: EU (occurrence: EU)
  Receive Date: 20251219
  Receipt Date: 20251219
  Transmission Date: 20260118
  Serious: Yes (Other)
  Sender: ELI LILLY AND COMPANY
  Company Number: None

PATIENT
  Age: 74 Year
  Sex: Female
  Weight: 61 kg

DRUGS (2)
  1. TERIPARATIDE [Suspect]
     Active Substance: TERIPARATIDE
     Indication: Osteoporotic fracture
     Route: 058
     Dates: start: 202404, end: 202504
  2. PROLIA [Suspect]
     Active Substance: DENOSUMAB
     Indication: Osteoporotic fracture
     Dosage: 60 MG, OTHER (6 MONTHS)
     Route: 058
     Dates: start: 202404, end: 202504

REACTIONS (1)
  - Alveolar bone defect [Not Recovered/Not Resolved]

NARRATIVE: CASE EVENT DATE: 20250401
